FAERS Safety Report 15606448 (Version 1)
Quarter: 2018Q4

REPORT INFORMATION
  Report Type: Spontaneous
  Country: DE (occurrence: DE)
  Receive Date: 20181112
  Receipt Date: 20181112
  Transmission Date: 20190205
  Serious: Yes (Hospitalization)
  Sender: FDA-Public Use
  Company Number: DE-ACCORD-091871

PATIENT
  Age: 62 Year
  Sex: Female
  Weight: 60 kg

DRUGS (11)
  1. FOLIC ACID. [Concomitant]
     Active Substance: FOLIC ACID
     Dosage: 5 MG, 2X/WEEKLY, TABLET
     Route: 048
  2. LEVOTHYROXINE. [Concomitant]
     Active Substance: LEVOTHYROXINE
     Dosage: 75 MCG, 1-0-0, TABLETS
     Route: 048
  3. ACETYLSALICYLIC ACID [Concomitant]
     Active Substance: ASPIRIN
     Dosage: 100 MG, 1-0-1; PAUSE SEIT27.12.2016, TABLETTEN
     Route: 048
  4. METOPROLOL. [Concomitant]
     Active Substance: METOPROLOL
     Dosage: 47.5 MG, 1/2-0-0, TABLETTEN
     Route: 048
  5. IBUHEXAL [Concomitant]
     Active Substance: IBUPROFEN
     Dosage: 400 MG, TABLETTEN
     Route: 048
  6. ESOMEPRAZOLE. [Concomitant]
     Active Substance: ESOMEPRAZOLE MAGNESIUM
     Dosage: 20 MG, 1-0-0, TABLETTEN
     Route: 048
  7. METHOTREXATE. [Suspect]
     Active Substance: METHOTREXATE
     Dosage: 10 MG, 1X/WOCHENTL., TABLETTEN
     Route: 048
  8. MAGNESIUM CARBONATE [Concomitant]
     Active Substance: MAGNESIUM CARBONATE
     Dosage: 300 MG, 0-0-2
     Route: 048
  9. ZOSTEX [Suspect]
     Active Substance: BRIVUDINE
     Dosage: 7 TAGE BIS 23.12.2016, TABLETTEN
     Route: 048
  10. PRAVASTATIN. [Concomitant]
     Active Substance: PRAVASTATIN
     Dosage: 40 MG, 0-0-1/2, TABLETTEN
     Route: 048
  11. METOCLOPRAMIDE. [Concomitant]
     Active Substance: METOCLOPRAMIDE
     Dosage: B.B.,DROPS
     Route: 048

REACTIONS (2)
  - Thrombocytopenia [Unknown]
  - Petechiae [Unknown]
